FAERS Safety Report 15754247 (Version 2)
Quarter: 2019Q3

REPORT INFORMATION
  Report Type: Report from Study
  Country: US (occurrence: US)
  Receive Date: 20181223
  Receipt Date: 20190807
  Transmission Date: 20191004
  Serious: Yes (Hospitalization)
  Sender: FDA-Public Use
  Company Number: US-ACTELION-A-NJ2017-160949

PATIENT
  Age: 4 Year
  Sex: Male
  Weight: 16.33 kg

DRUGS (4)
  1. TRACLEER [Suspect]
     Active Substance: BOSENTAN
     Indication: PULMONARY ARTERIAL HYPERTENSION
     Dosage: 13 MG, Q12HRS
     Route: 048
  2. TRACLEER [Suspect]
     Active Substance: BOSENTAN
     Dosage: 23 MG, Q12HRS
     Route: 048
  3. TRACLEER [Suspect]
     Active Substance: BOSENTAN
     Dosage: 31.25 MG, BID
     Route: 048
     Dates: start: 20180404
  4. REVATIO [Suspect]
     Active Substance: SILDENAFIL CITRATE
     Indication: PULMONARY ARTERIAL HYPERTENSION
     Dosage: 20 MG, TID
     Route: 065
     Dates: start: 20180510

REACTIONS (5)
  - Oxygen saturation decreased [Not Recovered/Not Resolved]
  - Unevaluable event [Unknown]
  - Pneumonia [Unknown]
  - Hypoxia [Not Recovered/Not Resolved]
  - Tracheostomy infection [Unknown]

NARRATIVE: CASE EVENT DATE: 20180720
